FAERS Safety Report 7883835-2 (Version None)
Quarter: 2011Q4

REPORT INFORMATION
  Report Type: 
  Country: None (occurrence: None)
  Receive Date: 20111102
  Receipt Date: 20111019
  Transmission Date: 20120403
  Serious: Yes (Hospitalization, Other)
  Sender: FDA-Public Use
  Company Number: US-ELI_LILLY_AND_COMPANY-US201012001633

PATIENT
  Sex: Female
  Weight: 52.154 kg

DRUGS (21)
  1. MEGACE [Concomitant]
  2. LISINOPRIL [Concomitant]
  3. STRESSTABS WITH ZINC [Concomitant]
  4. SPIRIVA [Concomitant]
     Dosage: 1 DF, QD
  5. ALTRAMET [Concomitant]
  6. VITAMIN D [Concomitant]
  7. TYLENOL                                 /SCH/ [Concomitant]
     Indication: PAIN
     Dosage: 500 MG, PRN
  8. FORTEO [Suspect]
     Indication: OSTEOPOROSIS
     Dosage: 20 UG, DAILY (1/D)
     Dates: start: 20100601
  9. FORTEO [Suspect]
     Dosage: 20 UG, DAILY (1/D)
  10. FORTEO [Suspect]
     Dosage: 20 UG, QD
  11. REMICADE [Concomitant]
  12. ESTER-C [Concomitant]
     Dosage: 500 MG, UNK
  13. ALEVE [Concomitant]
  14. FISH OIL [Concomitant]
  15. METAMUCIL-2 [Concomitant]
  16. TYLENOL PM [Concomitant]
  17. ASACOL [Concomitant]
     Indication: CROHN'S DISEASE
     Dosage: 400 MG, TID
  18. PRILOSEC [Concomitant]
  19. FORTEO [Suspect]
     Dosage: 20 UG, QD
  20. FEOSOL [Concomitant]
     Indication: ANAEMIA
     Dosage: 1 DF, BID
  21. EFFEXOR [Concomitant]

REACTIONS (15)
  - BLOOD PRESSURE DECREASED [None]
  - WEIGHT DECREASED [None]
  - OEDEMA PERIPHERAL [None]
  - DEHYDRATION [None]
  - FEELING COLD [None]
  - DECREASED APPETITE [None]
  - CARDIAC DISORDER [None]
  - ASTHENIA [None]
  - FATIGUE [None]
  - HERPES ZOSTER [None]
  - SEPSIS [None]
  - MUSCULOSKELETAL PAIN [None]
  - MALAISE [None]
  - URINARY TRACT INFECTION [None]
  - GAIT DISTURBANCE [None]
